FAERS Safety Report 19063985 (Version 2)
Quarter: 2021Q2

REPORT INFORMATION
  Report Type: Spontaneous
  Country: IT (occurrence: IT)
  Receive Date: 20210326
  Receipt Date: 20210401
  Transmission Date: 20210717
  Serious: Yes (Hospitalization)
  Sender: FDA-Public Use
  Company Number: IT-TEVA-2021-IT-1893399

PATIENT
  Age: 49 Year
  Sex: Female

DRUGS (3)
  1. CARBOPLATINO TEVA 10 MG/ML [Suspect]
     Active Substance: CARBOPLATIN
     Indication: NASOPHARYNGEAL CANCER
     Dosage: UNIT DOSE: 400 MILLIGRAM
     Route: 042
     Dates: start: 20201202
  2. GEMSOL [Suspect]
     Active Substance: GEMCITABINE HYDROCHLORIDE
     Indication: NASOPHARYNGEAL CANCER
     Dosage: UNIT DOSE: 1600 MILLIGRAM
     Route: 042
     Dates: start: 20201202
  3. DENOSUMAB [Concomitant]
     Active Substance: DENOSUMAB
     Dates: start: 20201202

REACTIONS (1)
  - Pancytopenia [Recovered/Resolved]

NARRATIVE: CASE EVENT DATE: 20210227
